FAERS Safety Report 9685303 (Version 1)
Quarter: 2013Q4

REPORT INFORMATION
  Report Type: Spontaneous
  Country: US (occurrence: None)
  Receive Date: 20131112
  Receipt Date: 20131112
  Transmission Date: 20140711
  Serious: Yes (Other)
  Sender: FDA-Public Use
  Company Number: None

PATIENT
  Sex: Female
  Weight: 65.77 kg

DRUGS (5)
  1. PROLIA [Suspect]
     Indication: OSTEOPOROSIS
     Dosage: 1 EYE SYRING EVERY 6 MONS INJECTION
     Dates: start: 20130301
  2. CALCIUM 500 MG [Concomitant]
  3. VITAMIN D3 [Concomitant]
  4. D 12 [Concomitant]
  5. B 12 [Concomitant]

REACTIONS (10)
  - Drug administered at inappropriate site [None]
  - Sciatica [None]
  - Pain in extremity [None]
  - Injection site pain [None]
  - Blister [None]
  - Arthritis [None]
  - Dry skin [None]
  - Muscle spasms [None]
  - Contusion [None]
  - Skin discolouration [None]
